FAERS Safety Report 11352143 (Version 1)
Quarter: 2015Q3

REPORT INFORMATION
  Report Type: Spontaneous
  Country: US (occurrence: US)
  Receive Date: 20150807
  Receipt Date: 20150807
  Transmission Date: 20151125
  Serious: No
  Sender: FDA-Public Use
  Company Number: US-JNJFOC-20150413101

PATIENT
  Sex: Male
  Weight: 81.65 kg

DRUGS (4)
  1. VITAMIN [Concomitant]
     Active Substance: VITAMINS
     Indication: NUTRITIONAL SUPPLEMENTATION
     Dosage: DAILY
     Route: 065
  2. ZYRTEC D ALLERGY AND CONGESTION [Suspect]
     Active Substance: CETIRIZINE HYDROCHLORIDE\PSEUDOEPHEDRINE HYDROCHLORIDE
     Indication: SEASONAL ALLERGY
     Dosage: HE TOOK 1 TABLET AND THEN ABOUT 2 DAYS LATER HE TOOK ANOTHER ONE.
     Route: 048
  3. ZYRTEC D ALLERGY AND CONGESTION [Suspect]
     Active Substance: CETIRIZINE HYDROCHLORIDE\PSEUDOEPHEDRINE HYDROCHLORIDE
     Indication: MULTIPLE ALLERGIES
     Dosage: HE TOOK 1 TABLET AND THEN ABOUT 2 DAYS LATER HE TOOK ANOTHER ONE.
     Route: 048
  4. ZYRTEC D ALLERGY AND CONGESTION [Suspect]
     Active Substance: CETIRIZINE HYDROCHLORIDE\PSEUDOEPHEDRINE HYDROCHLORIDE
     Indication: HOUSE DUST ALLERGY
     Dosage: HE TOOK 1 TABLET AND THEN ABOUT 2 DAYS LATER HE TOOK ANOTHER ONE.
     Route: 048

REACTIONS (5)
  - Dysuria [Recovered/Resolved]
  - Urine output decreased [Recovered/Resolved]
  - Off label use [Recovered/Resolved]
  - Inappropriate schedule of drug administration [Recovered/Resolved]
  - Incorrect dose administered [Recovered/Resolved]
